FAERS Safety Report 12227185 (Version 2)
Quarter: 2016Q2

REPORT INFORMATION
  Report Type: Spontaneous
  Country: US (occurrence: US)
  Receive Date: 20160331
  Receipt Date: 20160506
  Transmission Date: 20160815
  Serious: Yes (Other)
  Sender: FDA-Public Use
  Company Number: US-GLAXOSMITHKLINE-US2016043678

PATIENT
  Age: 68 Year
  Sex: Female

DRUGS (6)
  1. ENALAPRIL [Concomitant]
     Active Substance: ENALAPRIL
  2. ADVAIR DISKUS [Suspect]
     Active Substance: FLUTICASONE PROPIONATE\SALMETEROL XINAFOATE
     Indication: ASTHMA
     Dosage: 1 PUFF(S), QD
     Route: 055
     Dates: start: 2000
  3. ADVAIR DISKUS [Suspect]
     Active Substance: FLUTICASONE PROPIONATE\SALMETEROL XINAFOATE
     Indication: PROPHYLAXIS
  4. GABAPENTIN. [Concomitant]
     Active Substance: GABAPENTIN
  5. LACTAID [Concomitant]
     Active Substance: LACTASE
  6. OMEPRAZOLE. [Concomitant]
     Active Substance: OMEPRAZOLE

REACTIONS (10)
  - Hip arthroplasty [Recovering/Resolving]
  - Dyspnoea [Recovering/Resolving]
  - Underdose [Unknown]
  - Neuropathy peripheral [Unknown]
  - Sinus congestion [Recovering/Resolving]
  - Complication associated with device [Unknown]
  - Laboratory test abnormal [Unknown]
  - Device use error [Unknown]
  - Product used for unknown indication [Unknown]
  - Product quality issue [Unknown]

NARRATIVE: CASE EVENT DATE: 2000
